FAERS Safety Report 10141825 (Version 1)
Quarter: 2014Q2

REPORT INFORMATION
  Report Type: Spontaneous
  Country: US (occurrence: US)
  Receive Date: 20140429
  Receipt Date: 20140429
  Transmission Date: 20141212
  Serious: Yes (Hospitalization)
  Sender: FDA-Public Use
  Company Number: US-GILEAD-2014-0100952

PATIENT
  Age: 50 Year
  Sex: Male

DRUGS (9)
  1. LETAIRIS [Suspect]
     Indication: PULMONARY HYPERTENSION
     Dosage: 5 MG, QD
     Route: 065
     Dates: start: 20140411, end: 20140415
  2. SPIRIVA [Concomitant]
  3. SYMBICORT [Concomitant]
  4. MULTIVITAMIN                       /07504101/ [Concomitant]
  5. ALBUTEROL                          /00139501/ [Concomitant]
  6. FISH OIL [Concomitant]
  7. BUPROPION [Concomitant]
  8. PREDNISONE [Concomitant]
  9. IPRATROPIUM [Concomitant]

REACTIONS (1)
  - Oedema peripheral [Not Recovered/Not Resolved]
